FAERS Safety Report 15481839 (Version 1)
Quarter: 2018Q4

REPORT INFORMATION
  Report Type: Spontaneous
  Country: IL (occurrence: IL)
  Receive Date: 20181010
  Receipt Date: 20181010
  Transmission Date: 20190205
  Serious: Yes (Hospitalization, Other)
  Sender: FDA-Public Use
  Company Number: IL-LUPIN PHARMACEUTICALS INC.-2018-07018

PATIENT
  Age: 22 Year
  Sex: Female

DRUGS (10)
  1. LEVOTHYROXINE. [Concomitant]
     Active Substance: LEVOTHYROXINE
     Indication: WEIGHT DECREASED
     Dosage: UNK
     Route: 065
  2. BUPROPION. [Suspect]
     Active Substance: BUPROPION
     Indication: BULIMIA NERVOSA
     Dosage: 1200-1500 MG, QD
     Route: 065
  3. QUETIAPINE. [Concomitant]
     Active Substance: QUETIAPINE
     Indication: SLEEP DISORDER
     Dosage: 25 MG, QD
     Route: 065
  4. BUPROPION. [Suspect]
     Active Substance: BUPROPION
     Indication: POST-TRAUMATIC STRESS DISORDER
     Dosage: 300-450 MG, QD
     Route: 065
  5. BUPROPION. [Suspect]
     Active Substance: BUPROPION
     Dosage: 3000-4500 MG, QD
     Route: 065
  6. BUPROPION. [Suspect]
     Active Substance: BUPROPION
     Dosage: UNK
     Route: 065
  7. QUETIAPINE. [Concomitant]
     Active Substance: QUETIAPINE
     Indication: ANXIETY
     Dosage: 200 MG, QD
     Route: 065
  8. METHYLPHENIDATE. [Suspect]
     Active Substance: METHYLPHENIDATE
     Indication: BULIMIA NERVOSA
  9. METHYLPHENIDATE. [Suspect]
     Active Substance: METHYLPHENIDATE
     Indication: POST-TRAUMATIC STRESS DISORDER
     Dosage: UNK
     Route: 065
  10. FLUOXETINE [Concomitant]
     Active Substance: FLUOXETINE HYDROCHLORIDE
     Indication: MAJOR DEPRESSION
     Dosage: 20 MG, QD
     Route: 065

REACTIONS (10)
  - Intentional self-injury [Unknown]
  - Headache [Unknown]
  - Tachycardia [Unknown]
  - Amnesia [Unknown]
  - Weight decreased [Unknown]
  - Insomnia [Unknown]
  - Drug abuse [Unknown]
  - Anxiety [Unknown]
  - Generalised tonic-clonic seizure [Unknown]
  - Overdose [Unknown]
